FAERS Safety Report 16252124 (Version 1)
Quarter: 2019Q2

REPORT INFORMATION
  Report Type: Spontaneous
  Country: CN (occurrence: CN)
  Receive Date: 20190429
  Receipt Date: 20190429
  Transmission Date: 20190711
  Serious: Yes (Hospitalization)
  Sender: FDA-Public Use
  Company Number: CN-PFIZER INC-2019177741

PATIENT
  Age: 49 Year
  Sex: Male

DRUGS (1)
  1. SOLU-MEDROL [Suspect]
     Active Substance: METHYLPREDNISOLONE SODIUM SUCCINATE
     Indication: DRUG THERAPY
     Dosage: UNK
     Dates: start: 201609

REACTIONS (3)
  - Neuromyelitis optica spectrum disorder [Unknown]
  - Pleural effusion [Recovering/Resolving]
  - Protein deficiency [Unknown]

NARRATIVE: CASE EVENT DATE: 201612
